FAERS Safety Report 6242437-4 (Version None)
Quarter: 2009Q2

REPORT INFORMATION
  Report Type: 
  Country: None (occurrence: None)
  Receive Date: 20090622
  Receipt Date: 20090622
  Transmission Date: 20091009
  Serious: Yes (Life-Threatening)
  Sender: FDA-Public Use
  Company Number: None

PATIENT
  Age: 52 Year
  Sex: Female
  Weight: 106.5953 kg

DRUGS (1)
  1. ZICAM COLD REMEDY OVER THE COUNTER SUBSIDIARY OF MATRIXX INITIATIVES [Suspect]
     Indication: NASOPHARYNGITIS
     Dosage: 0.5 FLUID OZ. ONCE PER DAY NASAL; APPROX. 3 DAYS, 3 MTHS APRT
     Route: 045
     Dates: start: 20061028, end: 20080125

REACTIONS (5)
  - ANOSMIA [None]
  - DEPRESSION [None]
  - HYPOGEUSIA [None]
  - INJURY [None]
  - WEIGHT INCREASED [None]
